FAERS Safety Report 11840421 (Version 1)
Quarter: 2015Q4

REPORT INFORMATION
  Report Type: Spontaneous
  Country: US (occurrence: None)
  Receive Date: 20151215
  Receipt Date: 20151215
  Transmission Date: 20160305
  Serious: No
  Sender: FDA-Public Use
  Company Number: None

PATIENT
  Sex: Female

DRUGS (2)
  1. GLIMEPIRIDE. [Suspect]
     Active Substance: GLIMEPIRIDE
  2. INVOKANA [Suspect]
     Active Substance: CANAGLIFLOZIN

REACTIONS (4)
  - Dizziness [None]
  - Arthropathy [None]
  - Wrong technique in product usage process [None]
  - Pruritus [None]
